FAERS Safety Report 17231339 (Version 2)
Quarter: 2020Q1

REPORT INFORMATION
  Report Type: Spontaneous
  Country: US (occurrence: US)
  Receive Date: 20200103
  Receipt Date: 20200117
  Transmission Date: 20200409
  Serious: No
  Sender: FDA-Public Use
  Company Number: US-PFIZER INC-2019560630

PATIENT
  Age: 41 Year
  Sex: Female

DRUGS (1)
  1. OXALIPLATIN. [Suspect]
     Active Substance: OXALIPLATIN
     Indication: RECTAL ADENOCARCINOMA
     Dosage: 176 MG, EVERY 3 WEEKS (Q3 (EVERY) WKS)
     Route: 042
     Dates: start: 20191113

REACTIONS (4)
  - Dysarthria [Recovered/Resolved]
  - Peroneal nerve palsy [Recovered/Resolved]
  - Thinking abnormal [Unknown]
  - Asthenia [Recovered/Resolved]

NARRATIVE: CASE EVENT DATE: 20191204
